FAERS Safety Report 19048538 (Version 2)
Quarter: 2021Q2

REPORT INFORMATION
  Report Type: Report from Study
  Country: FR (occurrence: FR)
  Receive Date: 20210323
  Receipt Date: 20210413
  Transmission Date: 20210717
  Serious: Yes (Other)
  Sender: FDA-Public Use
  Company Number: FR-PFIZER INC-2021290008

PATIENT

DRUGS (2)
  1. SULFASALAZINE. [Suspect]
     Active Substance: SULFASALAZINE
     Dosage: 2 G, DAILY (INITIAL DOSE INCREASED EVERY WEEK TO REACH 2G/DAY)
  2. SULFASALAZINE. [Suspect]
     Active Substance: SULFASALAZINE
     Indication: CHRONIC CUTANEOUS LUPUS ERYTHEMATOSUS
     Dosage: 0.5 G, DAILY

REACTIONS (2)
  - Chronic cutaneous lupus erythematosus [Recovered/Resolved]
  - Condition aggravated [Recovered/Resolved]
